FAERS Safety Report 8936181 (Version 1)
Quarter: 2012Q4

REPORT INFORMATION
  Report Type: 
  Country: US (occurrence: US)
  Receive Date: 20121130
  Receipt Date: 20121130
  Transmission Date: 20130627
  Serious: No
  Sender: FDA-Public Use
  Company Number: US-ABBOTT-12P-163-0983675-00

PATIENT
  Sex: Male
  Weight: 62.65 kg

DRUGS (1)
  1. ANDROGEL [Suspect]
     Indication: BLOOD TESTOSTERONE DECREASED
     Dosage: 2 pumps per day

REACTIONS (8)
  - Feeling abnormal [Unknown]
  - Anxiety [Unknown]
  - Fatigue [Unknown]
  - Disturbance in attention [Unknown]
  - Dizziness [Unknown]
  - Altered state of consciousness [Unknown]
  - Product measured potency issue [Unknown]
  - Low density lipoprotein increased [Unknown]
